FAERS Safety Report 11081855 (Version 5)
Quarter: 2015Q3

REPORT INFORMATION
  Report Type: Report from Study
  Country: US (occurrence: US)
  Receive Date: 20150501
  Receipt Date: 20150729
  Transmission Date: 20151125
  Serious: Yes (Hospitalization, Other)
  Sender: FDA-Public Use
  Company Number: US-SA-2015SA055532

PATIENT
  Age: 35 Year
  Sex: Male

DRUGS (7)
  1. RANITIDINE [Concomitant]
     Active Substance: RANITIDINE\RANITIDINE HYDROCHLORIDE
  2. CETIRIZINE [Concomitant]
     Active Substance: CETIRIZINE HYDROCHLORIDE
  3. LEMTRADA [Suspect]
     Active Substance: ALEMTUZUMAB
     Indication: MULTIPLE SCLEROSIS
     Route: 041
     Dates: start: 20150420, end: 20150422
  4. TECFIDERA [Concomitant]
     Active Substance: DIMETHYL FUMARATE
     Dates: start: 20130701, end: 20150417
  5. PEPCID [Concomitant]
     Active Substance: FAMOTIDINE
     Dates: start: 20150421
  6. VITAMIN D [Concomitant]
     Active Substance: CHOLECALCIFEROL
  7. ACYCLOVIR. [Concomitant]
     Active Substance: ACYCLOVIR

REACTIONS (13)
  - Haemoptysis [Recovered/Resolved]
  - Rash [Recovering/Resolving]
  - Pyrexia [Unknown]
  - Dyspnoea [Recovering/Resolving]
  - Lymphocyte count abnormal [Unknown]
  - Arthralgia [Unknown]
  - Fatigue [Unknown]
  - Pruritus [Recovered/Resolved]
  - Joint swelling [Unknown]
  - Chest discomfort [Unknown]
  - Pulmonary infarction [Recovered/Resolved]
  - Fibrin D dimer increased [Unknown]
  - Back pain [Recovered/Resolved]

NARRATIVE: CASE EVENT DATE: 2015
